FAERS Safety Report 23177493 (Version 2)
Quarter: 2023Q4

REPORT INFORMATION
  Report Type: Spontaneous
  Country: JP (occurrence: JP)
  Receive Date: 20231113
  Receipt Date: 20231116
  Transmission Date: 20240110
  Serious: No
  Sender: FDA-Public Use
  Company Number: JP-ASTRAZENECA-230081891_070810_P_1

PATIENT
  Age: 1 Year

DRUGS (1)
  1. SYNAGIS [Suspect]
     Active Substance: PALIVIZUMAB
     Indication: Product used for unknown indication
     Dosage: DOSE UNKNOWN
     Route: 030
     Dates: start: 20230901, end: 20230901

REACTIONS (1)
  - No adverse event [Unknown]
